FAERS Safety Report 18200291 (Version 1)
Quarter: 2020Q3

REPORT INFORMATION
  Report Type: Spontaneous
  Country: US (occurrence: US)
  Receive Date: 20200827
  Receipt Date: 20200827
  Transmission Date: 20201103
  Serious: No
  Sender: FDA-Public Use
  Company Number: US-HIKMA PHARMACEUTICALS USA INC.-US-H14001-20-03640

PATIENT
  Sex: Female

DRUGS (2)
  1. METHOTREXATE TABLETS [Suspect]
     Active Substance: METHOTREXATE
     Indication: RHEUMATOID ARTHRITIS
     Route: 065
  2. METHOTREXATE INJECTION [Suspect]
     Active Substance: METHOTREXATE
     Indication: RHEUMATOID ARTHRITIS
     Dosage: UNKNOWN
     Route: 065

REACTIONS (6)
  - Pain [Unknown]
  - Inflammation [Unknown]
  - Malaise [Unknown]
  - Nausea [Unknown]
  - Abdominal discomfort [Unknown]
  - Injection site rash [Unknown]
